FAERS Safety Report 6082506-5 (Version None)
Quarter: 2009Q1

REPORT INFORMATION
  Report Type: 
  Country: None (occurrence: None)
  Receive Date: 20090126
  Receipt Date: 20071017
  Transmission Date: 20090719
  Serious: Yes (Hospitalization)
  Sender: FDA-Public Use
  Company Number: 268583

PATIENT
  Sex: Female

DRUGS (2)
  1. LEVEMIR [Suspect]
     Indication: TYPE 1 DIABETES MELLITUS
     Dosage: 18 IU, QD, SUBCUTANEOUS
     Route: 058
     Dates: start: 20050101
  2. NOVOLOG [Concomitant]

REACTIONS (3)
  - ASTHENIA [None]
  - DIABETIC KETOACIDOSIS [None]
  - VOMITING [None]
